FAERS Safety Report 6836159-6 (Version None)
Quarter: 2010Q3

REPORT INFORMATION
  Report Type: 
  Country: None (occurrence: None)
  Receive Date: 20100713
  Receipt Date: 20100702
  Transmission Date: 20110219
  Serious: Yes (Disabling)
  Sender: FDA-Public Use
  Company Number: GB-PFIZER INC-2010082700

PATIENT
  Age: 43 Year
  Sex: Female

DRUGS (3)
  1. TRANEXAMIC ACID [Suspect]
     Indication: MENORRHAGIA
     Dosage: UNK
     Route: 048
     Dates: start: 20100317, end: 20100510
  2. AMITRIPTYLINE [Concomitant]
  3. RISPERIDONE [Concomitant]

REACTIONS (3)
  - EYELID OEDEMA [None]
  - OEDEMA PERIPHERAL [None]
  - RASH [None]
